FAERS Safety Report 9453189 (Version 1)
Quarter: 2013Q3

REPORT INFORMATION
  Report Type: Spontaneous
  Country: CN (occurrence: CN)
  Receive Date: 20130812
  Receipt Date: 20130812
  Transmission Date: 20140515
  Serious: Yes (Other)
  Sender: FDA-Public Use
  Company Number: CN-PFIZER INC-2013232120

PATIENT
  Age: 36 Year
  Sex: Female
  Weight: 55 kg

DRUGS (1)
  1. CELEBREX [Suspect]
     Indication: HEADACHE
     Dosage: 400 MG, ONCE DAILY
     Route: 048
     Dates: start: 20120605, end: 20120605

REACTIONS (3)
  - Arteriospasm coronary [Recovering/Resolving]
  - Sternitis [Recovering/Resolving]
  - Dizziness [Recovering/Resolving]
